FAERS Safety Report 10419391 (Version 1)
Quarter: 2014Q3

REPORT INFORMATION
  Report Type: Report from Study
  Country: US (occurrence: US)
  Receive Date: 20140829
  Receipt Date: 20140829
  Transmission Date: 20150326
  Serious: Yes (Other)
  Sender: FDA-Public Use
  Company Number: US-UCBSA-2014009798

PATIENT
  Age: 25 Year
  Sex: Female
  Weight: 104.7 kg

DRUGS (10)
  1. FOLIC ACID. [Concomitant]
     Active Substance: FOLIC ACID
     Dosage: 1 MG, ONCE DAILY (QD)
     Dates: start: 20140605
  2. TYLENOL [Concomitant]
     Active Substance: ACETAMINOPHEN
     Indication: HEADACHE
     Dosage: 2 DF, ONCE DAILY (QD), PILLS
     Route: 048
     Dates: start: 20140519, end: 20140519
  3. TRAMADOL [Concomitant]
     Active Substance: TRAMADOL
     Indication: CROHN^S DISEASE
     Dosage: 50 MG, UNK, EVERY 3.5 WEEK
     Route: 048
     Dates: start: 20140322, end: 20140522
  4. CERTOLIZUMAB PEGOL RA [Suspect]
     Active Substance: CERTOLIZUMAB PEGOL
     Indication: CROHN^S DISEASE
     Dosage: 400 MG, 2X/MONTH
     Dates: start: 20140523, end: 20140620
  5. TRAMADOL [Concomitant]
     Active Substance: TRAMADOL
     Dosage: 50 MG, WEEKLY (QW)
     Route: 048
     Dates: start: 20140523, end: 20140718
  6. CERTOLIZUMAB PEGOL RA [Suspect]
     Active Substance: CERTOLIZUMAB PEGOL
     Dosage: 400 MG, UNK
     Dates: start: 20140718, end: 20140718
  7. ALBUTEROL. [Concomitant]
     Active Substance: ALBUTEROL
     Indication: ASTHMA
     Dosage: 2 DF, 2X/DAY (BID), PUFF
     Dates: start: 20140322, end: 20140619
  8. TRAMADOL [Concomitant]
     Active Substance: TRAMADOL
     Dosage: 75 MG, ONCE DAILY (QD)
     Route: 048
     Dates: start: 20140719
  9. AZATHIOPRINE. [Concomitant]
     Active Substance: AZATHIOPRINE
     Indication: CROHN^S DISEASE
     Dosage: 50 MG, 2X/DAY (BID)
     Route: 048
     Dates: start: 20140501, end: 20140718
  10. PRENATAL VITAMINS [Concomitant]
     Active Substance: VITAMINS
     Dosage: 1 DF, ONCE DAILY (QD) PILL
     Route: 048
     Dates: start: 20140424

REACTIONS (10)
  - Crohn^s disease [Unknown]
  - Maternal exposure during pregnancy [Unknown]
  - Viral infection [Recovered/Resolved]
  - Pyrexia [Recovered/Resolved]
  - Cystitis [Recovered/Resolved]
  - Urinary tract infection [Recovered/Resolved]
  - Nausea [Unknown]
  - Ear infection [Recovered/Resolved]
  - Muscle injury [Unknown]
  - Weight decreased [Unknown]

NARRATIVE: CASE EVENT DATE: 2014
